FAERS Safety Report 9552071 (Version 1)
Quarter: 2013Q3

REPORT INFORMATION
  Report Type: Spontaneous
  Country: US (occurrence: None)
  Receive Date: 20130923
  Receipt Date: 20130923
  Transmission Date: 20140515
  Serious: Yes (Other)
  Sender: FDA-Public Use
  Company Number: CL-519-2013

PATIENT
  Age: 80 Year
  Sex: Female

DRUGS (10)
  1. CIPROFLOXACIN [Suspect]
     Dosage: 500 MG BD ORAL
     Route: 048
  2. OXYCODONE HYDROCHLORIDE [Suspect]
     Indication: PAIN
     Dosage: 5 MG BD
  3. PARACETAMOL [Concomitant]
  4. SOLFENACIN [Concomitant]
  5. ASPIRIN [Concomitant]
  6. THIAMINE [Concomitant]
  7. CALCIUM [Concomitant]
  8. CHOLECALCIFEROL [Concomitant]
  9. FENTANYL [Concomitant]
  10. METOPROLOL [Concomitant]

REACTIONS (5)
  - Myoclonus [None]
  - Drug interaction [None]
  - Pneumonia [None]
  - Inadequate analgesia [None]
  - Computerised tomogram abnormal [None]
